FAERS Safety Report 20004330 (Version 1)
Quarter: 2021Q4

REPORT INFORMATION
  Report Type: Spontaneous
  Country: US (occurrence: US)
  Receive Date: 20211028
  Receipt Date: 20211028
  Transmission Date: 20220303
  Serious: No
  Sender: FDA-Public Use
  Company Number: US-ELI_LILLY_AND_COMPANY-US202110005899

PATIENT
  Sex: Female

DRUGS (7)
  1. HUMULIN R U-500 [Suspect]
     Active Substance: INSULIN HUMAN
     Indication: Product used for unknown indication
     Dosage: UNK UNK, UNKNOWN
     Route: 058
  2. HUMULIN R U-500 [Suspect]
     Active Substance: INSULIN HUMAN
     Indication: Product used for unknown indication
     Dosage: UNK UNK, UNKNOWN
     Route: 058
  3. HUMULIN R U-500 [Suspect]
     Active Substance: INSULIN HUMAN
     Indication: Product used for unknown indication
     Dosage: UNK UNK, UNKNOWN
     Route: 058
  4. HUMULIN R U-500 [Suspect]
     Active Substance: INSULIN HUMAN
     Dosage: UNK UNK, UNKNOWN
     Route: 058
  5. HUMULIN R U-500 [Suspect]
     Active Substance: INSULIN HUMAN
     Dosage: UNK UNK, UNKNOWN
     Route: 058
  6. HUMULIN R U-500 [Suspect]
     Active Substance: INSULIN HUMAN
     Dosage: UNK UNK, UNKNOWN
     Route: 058
  7. HUMULIN R U-500 [Suspect]
     Active Substance: INSULIN HUMAN
     Dosage: UNK UNK, UNKNOWN
     Route: 058

REACTIONS (3)
  - Injection site pain [Unknown]
  - Product dose omission issue [Unknown]
  - Wrong technique in product usage process [Unknown]
